FAERS Safety Report 17250349 (Version 1)
Quarter: 2020Q1

REPORT INFORMATION
  Report Type: Spontaneous
  Country: US (occurrence: US)
  Receive Date: 20200109
  Receipt Date: 20200109
  Transmission Date: 20200409
  Serious: Yes (Hospitalization, Other)
  Sender: FDA-Public Use
  Company Number: US-VISTAPHARM, INC.-VER201910-001104

PATIENT
  Sex: Female

DRUGS (3)
  1. METHADONE [Suspect]
     Active Substance: METHADONE HYDROCHLORIDE
     Indication: PRODUCT USED FOR UNKNOWN INDICATION
     Dosage: UNKNOWN
  2. LONSURF [Concomitant]
     Active Substance: TIPIRACIL HYDROCHLORIDE\TRIFLURIDINE
     Indication: COLORECTAL CANCER METASTATIC
     Dosage: UNKNOWN
     Dates: start: 20190912
  3. OXALLPLATIN [Concomitant]
     Indication: NEOPLASM MALIGNANT
     Dosage: UNKNOWN

REACTIONS (3)
  - Vomiting [Unknown]
  - Drug withdrawal syndrome [Unknown]
  - Nausea [Unknown]
